FAERS Safety Report 5080843-4 (Version None)
Quarter: 2006Q3

REPORT INFORMATION
  Report Type: 
  Country: None (occurrence: None)
  Receive Date: 20060810
  Receipt Date: 20060731
  Transmission Date: 20061208
  Serious: Yes (Other)
  Sender: FDA-Public Use
  Company Number: 2006091706

PATIENT
  Sex: Male

DRUGS (1)
  1. SERTRALINE [Suspect]
     Indication: DEPRESSION
     Dosage: 50 MG (50 MG, 1 IN 1 D), ORAL
     Route: 048

REACTIONS (3)
  - AGGRESSION [None]
  - DRUG SCREEN FALSE POSITIVE [None]
  - MENTAL DISORDER [None]
